FAERS Safety Report 9011368 (Version 1)
Quarter: 2013Q1

REPORT INFORMATION
  Report Type: Spontaneous
  Country: US (occurrence: US)
  Receive Date: 20130108
  Receipt Date: 20130108
  Transmission Date: 20140127
  Serious: Yes (Other)
  Sender: FDA-Public Use
  Company Number: US-JNJFOC-20130101368

PATIENT
  Age: 86 Year
  Sex: Female

DRUGS (3)
  1. XARELTO [Suspect]
     Indication: THROMBOSIS PROPHYLAXIS
     Route: 048
     Dates: start: 201212, end: 201212
  2. XARELTO [Suspect]
     Indication: HIP ARTHROPLASTY
     Route: 048
     Dates: start: 201212, end: 201212
  3. CELEBREX [Suspect]
     Indication: HIP ARTHROPLASTY
     Route: 048
     Dates: start: 201212

REACTIONS (3)
  - Ecchymosis [Unknown]
  - Contusion [Unknown]
  - Transfusion [Unknown]
